FAERS Safety Report 14299969 (Version 4)
Quarter: 2020Q3

REPORT INFORMATION
  Report Type: Report from Study
  Country: GB (occurrence: GB)
  Receive Date: 20171219
  Receipt Date: 20180212
  Transmission Date: 20201104
  Serious: Yes (Hospitalization)
  Sender: FDA-Public Use
  Company Number: US-ASTRAZENECA-2017SF27281

PATIENT
  Age: 72 Year
  Sex: Female
  Weight: 68.3 kg

DRUGS (16)
  1. MONALIZUMAB. [Suspect]
     Active Substance: MONALIZUMAB
     Indication: OVARIAN CANCER
     Route: 042
     Dates: start: 20171025
  2. FLUTICASONE PROPIONATE. [Concomitant]
     Active Substance: FLUTICASONE PROPIONATE
     Route: 065
  3. LOSARTAN. [Concomitant]
     Active Substance: LOSARTAN
     Route: 065
  4. MAGNESIUM [Concomitant]
     Active Substance: MAGNESIUM
     Route: 065
  5. MACROGOL WITH POTASSIUM CHLORIDE WITH SODIUM BICARBONATE WITH CHLOR... [Concomitant]
     Route: 065
  6. DURVALUMAB. [Suspect]
     Active Substance: DURVALUMAB
     Indication: OVARIAN CANCER
     Route: 042
     Dates: start: 20171025
  7. CALCIUM CARBONATE WITH CHOLECALCIFEROL (ADCAL? [Concomitant]
     Route: 065
  8. CETIRIZINE [Concomitant]
     Active Substance: CETIRIZINE HYDROCHLORIDE
     Route: 065
  9. OMEPRAZOLE. [Concomitant]
     Active Substance: OMEPRAZOLE
     Route: 065
  10. UREA. [Concomitant]
     Active Substance: UREA
     Route: 065
  11. ALENDRONIC ACID [Concomitant]
     Active Substance: ALENDRONIC ACID
     Route: 065
  12. PREDNISOLONE. [Concomitant]
     Active Substance: PREDNISOLONE
     Route: 065
  13. POLYVINYL ALCOHOL [Concomitant]
     Active Substance: POLYVINYL ALCOHOL
     Route: 065
  14. LEVOTHYROXINE SODIUM. [Concomitant]
     Active Substance: LEVOTHYROXINE SODIUM
     Route: 065
  15. CROMOGLICATE SODIUM (OPTICROM ALLERGY EYE DROPS) [Concomitant]
     Route: 065
  16. HYDROCORTISONE CREAM [Concomitant]
     Active Substance: HYDROCORTISONE
     Route: 065

REACTIONS (1)
  - Encephalomyelitis [Recovered/Resolved]

NARRATIVE: CASE EVENT DATE: 20171212
